FAERS Safety Report 19357378 (Version 3)
Quarter: 2021Q3

REPORT INFORMATION
  Report Type: Spontaneous
  Country: CZ (occurrence: CZ)
  Receive Date: 20210601
  Receipt Date: 20210813
  Transmission Date: 20211014
  Serious: Yes (Other)
  Sender: FDA-Public Use
  Company Number: NVSC2021CZ115603

PATIENT
  Age: 31 Year
  Sex: Male

DRUGS (8)
  1. COSENTYX [Suspect]
     Active Substance: SECUKINUMAB
     Indication: PSORIATIC ARTHROPATHY
     Dosage: UNK
     Route: 065
     Dates: start: 201507, end: 201706
  2. COSENTYX [Suspect]
     Active Substance: SECUKINUMAB
     Dosage: 150 MG, BID
     Route: 065
  3. METHOTREXATE. [Concomitant]
     Active Substance: METHOTREXATE
     Indication: PRODUCT USED FOR UNKNOWN INDICATION
     Dosage: UNK
     Route: 065
  4. COSENTYX [Suspect]
     Active Substance: SECUKINUMAB
     Dosage: 300 MG (2 DOSES), QMO
     Route: 065
  5. IMUNOR [Concomitant]
     Active Substance: UNSPECIFIED INGREDIENT
     Indication: IMMUNE SYSTEM DISORDER
     Dosage: UNK
     Route: 065
  6. COSENTYX [Suspect]
     Active Substance: SECUKINUMAB
     Dosage: UNK (ONLY ONE DOSE)
     Route: 065
     Dates: start: 20210722
  7. AMOKSIKLAV [Suspect]
     Active Substance: AMOXICILLIN\CLAVULANATE POTASSIUM
     Indication: PRODUCT USED FOR UNKNOWN INDICATION
     Dosage: UNK
     Route: 065
  8. FLUCONAZOLE. [Concomitant]
     Active Substance: FLUCONAZOLE
     Indication: PRODUCT USED FOR UNKNOWN INDICATION
     Dosage: UNK (2X100)
     Route: 065

REACTIONS (10)
  - Inflammation [Unknown]
  - Eye irritation [Unknown]
  - Headache [Recovered/Resolved]
  - Psoriatic arthropathy [Unknown]
  - Candida infection [Unknown]
  - Eye pain [Unknown]
  - Dysuria [Not Recovered/Not Resolved]
  - Urinary tract discomfort [Unknown]
  - Ear pain [Unknown]
  - Eye inflammation [Not Recovered/Not Resolved]

NARRATIVE: CASE EVENT DATE: 2021
